FAERS Safety Report 4488166-9 (Version None)
Quarter: 2004Q4

REPORT INFORMATION
  Report Type: 
  Country: None (occurrence: None)
  Receive Date: 20041025
  Receipt Date: 20041012
  Transmission Date: 20050328
  Serious: Yes (Other)
  Sender: FDA-Public Use
  Company Number: 2003141488DE

PATIENT
  Age: 63 Year
  Sex: Female
  Weight: 65.8 kg

DRUGS (5)
  1. GENOTROPIN [Suspect]
     Indication: HYPOPITUITARISM
     Dosage: 0.3 MG, QD
     Dates: start: 20000724, end: 20020819
  2. GENOTROPIN [Suspect]
     Indication: HYPOPITUITARISM
     Dosage: 0.3 MG, QD
     Dates: start: 20030210
  3. HYDROCORTISONE [Concomitant]
  4. ZOCOR [Concomitant]
  5. VIGANTOLETTEN [Concomitant]

REACTIONS (2)
  - NEOPLASM RECURRENCE [None]
  - NON-SECRETORY ADENOMA OF PITUITARY [None]
